FAERS Safety Report 16311111 (Version 1)
Quarter: 2019Q2

REPORT INFORMATION
  Report Type: Report from Study
  Country: US (occurrence: US)
  Receive Date: 20190514
  Receipt Date: 20190514
  Transmission Date: 20190711
  Serious: Yes (Life-Threatening, Other)
  Sender: FDA-Public Use
  Company Number: PHHO2019US004817

PATIENT
  Age: 28 Year
  Sex: Female
  Weight: 57 kg

DRUGS (9)
  1. LINEZOLID. [Concomitant]
     Active Substance: LINEZOLID
     Indication: TUBERCULOSIS
     Dosage: 300 MG, QD
     Route: 065
     Dates: end: 20190430
  2. PROGESTERONE. [Concomitant]
     Active Substance: PROGESTERONE
     Indication: CONTRACEPTION
     Dosage: UNK
     Route: 065
  3. CYCLOSERINE. [Concomitant]
     Active Substance: CYCLOSERINE
     Indication: TUBERCULOSIS
     Dosage: 250/500 MG, QOD
     Route: 065
     Dates: end: 20190430
  4. LAMPRENE [Suspect]
     Active Substance: CLOFAZIMINE
     Indication: TUBERCULOSIS
     Dosage: 200 MG, QD
     Route: 048
     Dates: start: 20190314, end: 20190430
  5. LINEZOLID. [Concomitant]
     Active Substance: LINEZOLID
     Dosage: 300 MG, QD
     Route: 065
     Dates: start: 20190501, end: 20190503
  6. B6 [Concomitant]
     Active Substance: PYRIDOXINE HYDROCHLORIDE
     Indication: TUBERCULOSIS
     Dosage: 50 MG, QD
     Route: 065
  7. LAMPRENE [Suspect]
     Active Substance: CLOFAZIMINE
     Dosage: 200 MG, QD
     Route: 048
     Dates: start: 20190501, end: 20190503
  8. CYCLOSERINE. [Concomitant]
     Active Substance: CYCLOSERINE
     Dosage: 250/500 MG, QOD
     Route: 065
     Dates: start: 20190501, end: 20190503
  9. BEDAQUILINE [Suspect]
     Active Substance: BEDAQUILINE
     Indication: TUBERCULOSIS
     Dosage: 200 MG, Q3W
     Route: 065

REACTIONS (5)
  - Chest pain [Recovered/Resolved]
  - Electrocardiogram T wave abnormal [Unknown]
  - Dyspnoea [Unknown]
  - Electrocardiogram QT prolonged [Unknown]
  - Chest pain [Recovering/Resolving]

NARRATIVE: CASE EVENT DATE: 20190314
